FAERS Safety Report 22891876 (Version 5)
Quarter: 2023Q4

REPORT INFORMATION
  Report Type: Report from Study
  Country: US (occurrence: US)
  Receive Date: 20230901
  Receipt Date: 20231123
  Transmission Date: 20240110
  Serious: Yes (Other)
  Sender: FDA-Public Use
  Company Number: US-002147023-NVSC2023US189265

PATIENT
  Age: 83 Year
  Sex: Female

DRUGS (1)
  1. ENTRESTO [Suspect]
     Active Substance: SACUBITRIL\VALSARTAN
     Indication: Cardiac failure
     Dosage: 1 DOSAGE FORM, BID (24.26 MG), ONE TABLET ONCE A DAY FOR 5 DAYS, THEN TWICE A DAY
     Route: 048
     Dates: start: 2021

REACTIONS (11)
  - Angle closure glaucoma [Unknown]
  - Cataract [Unknown]
  - Glaucoma [Unknown]
  - Dry eye [Not Recovered/Not Resolved]
  - COVID-19 [Not Recovered/Not Resolved]
  - Visual impairment [Unknown]
  - Sinusitis [Unknown]
  - Fatigue [Unknown]
  - Cough [Not Recovered/Not Resolved]
  - Dizziness [Unknown]
  - Inappropriate schedule of product administration [Unknown]

NARRATIVE: CASE EVENT DATE: 20230601
